FAERS Safety Report 6036727-8 (Version None)
Quarter: 2009Q1

REPORT INFORMATION
  Report Type: 
  Country: None (occurrence: None)
  Receive Date: 20090114
  Receipt Date: 20090105
  Transmission Date: 20090719
  Serious: Yes (Other)
  Sender: FDA-Public Use
  Company Number: GB-PFIZER INC-2009151657

PATIENT

DRUGS (7)
  1. EPLERENONE [Suspect]
     Indication: PRIMARY HYPERALDOSTERONISM
     Route: 048
     Dates: start: 20080520, end: 20080523
  2. ATORVASTATIN CALCIUM [Concomitant]
  3. DOXAZOSIN MESILATE [Concomitant]
  4. INDAPAMIDE [Concomitant]
  5. IRBESARTAN [Concomitant]
  6. LANSOPRAZOLE [Concomitant]
  7. SPIRONOLACTONE [Concomitant]

REACTIONS (1)
  - MYALGIA [None]
